FAERS Safety Report 9352659 (Version 1)
Quarter: 2013Q2

REPORT INFORMATION
  Report Type: Spontaneous
  Country: CO (occurrence: CO)
  Receive Date: 20130618
  Receipt Date: 20130618
  Transmission Date: 20140414
  Serious: Yes (Other)
  Sender: FDA-Public Use
  Company Number: CO-AMGEN-COLSP2013042378

PATIENT
  Age: 62 Year
  Sex: Female

DRUGS (7)
  1. ENBREL [Suspect]
     Indication: RHEUMATOID ARTHRITIS
     Dosage: 50 MG, WEEKLY
     Route: 058
     Dates: start: 201202, end: 201212
  2. CALTRATE WITH VITAMIN D [Suspect]
     Indication: CALCIUM DEFICIENCY
     Dosage: 600 MG, 1X/DAY
     Route: 048
     Dates: start: 2010
  3. METHOTREXATE [Suspect]
     Indication: RHEUMATOID ARTHRITIS
     Dosage: 4 TABLETS OF 2.5MG, WEEKLY
     Route: 048
  4. BETAMETHASONE [Concomitant]
     Indication: PAIN
     Dosage: UNK, WEEKLY
     Route: 030
     Dates: start: 2006
  5. PREDNISOLON                        /00016201/ [Concomitant]
     Indication: PAIN
     Dosage: UNK, ONCE DAILY
     Route: 048
  6. CALCITRIOL [Concomitant]
     Indication: CALCIUM DEFICIENCY
     Dosage: UNK, ONCE DAILY
     Route: 048
     Dates: start: 2010
  7. ACETAMINOPHEN [Concomitant]
     Indication: PAIN
     Dosage: 500 MG, AS NEEDED
     Route: 048
     Dates: start: 2011

REACTIONS (5)
  - Arthropathy [Unknown]
  - Abdominal discomfort [Unknown]
  - Gastritis [Unknown]
  - Tuberculin test positive [Unknown]
  - Drug ineffective [Unknown]
